FAERS Safety Report 9439351 (Version 1)
Quarter: 2013Q3

REPORT INFORMATION
  Report Type: Report from Study
  Country: TR (occurrence: TR)
  Receive Date: 20130805
  Receipt Date: 20130805
  Transmission Date: 20140515
  Serious: Yes (Death, Hospitalization)
  Sender: FDA-Public Use
  Company Number: TR-ROCHE-1251671

PATIENT
  Age: 53 Year
  Sex: Male

DRUGS (2)
  1. XELODA [Suspect]
     Indication: COLON CANCER
     Route: 048
     Dates: start: 20130604, end: 201307
  2. XELODA [Suspect]
     Indication: GASTRIC CANCER

REACTIONS (3)
  - Full blood count decreased [Fatal]
  - Abdominal distension [Fatal]
  - Disease progression [Fatal]
